FAERS Safety Report 17284046 (Version 10)
Quarter: 2020Q4

REPORT INFORMATION
  Report Type: Spontaneous
  Country: US (occurrence: US)
  Receive Date: 20200117
  Receipt Date: 20201008
  Transmission Date: 20210113
  Serious: Yes (Other)
  Sender: FDA-Public Use
  Company Number: US-PFIZER INC-2020021672

PATIENT
  Age: 63 Year
  Sex: Female
  Weight: 122 kg

DRUGS (5)
  1. TOVIAZ [Suspect]
     Active Substance: FESOTERODINE FUMARATE
     Indication: CYSTITIS INTERSTITIAL
     Dosage: 8 MG, DAILY
     Route: 048
     Dates: start: 201907
  2. TOVIAZ [Suspect]
     Active Substance: FESOTERODINE FUMARATE
     Indication: URINARY RETENTION
     Dosage: 8 MG, DAILY
     Route: 048
     Dates: start: 2019
  3. TAMSULOSIN [Concomitant]
     Active Substance: TAMSULOSIN
     Indication: CYSTITIS INTERSTITIAL
     Dosage: 0.4 MG, 1X/DAY (BY MOUTH ONCE DAILY)
     Route: 048
     Dates: start: 201612
  4. NITROFURANTOIN MONOHYDRATE MACROCRYSTALS [Concomitant]
     Active Substance: NITROFURANTOIN\NITROFURANTOIN MONOHYDRATE
     Dosage: 100 MG, UNK
  5. FLOMAX [Concomitant]
     Active Substance: TAMSULOSIN HYDROCHLORIDE
     Indication: CYSTITIS INTERSTITIAL
     Dosage: UNK

REACTIONS (8)
  - Drug ineffective for unapproved indication [Unknown]
  - Off label use [Unknown]
  - Drug dependence [Unknown]
  - Kidney infection [Not Recovered/Not Resolved]
  - Therapeutic response unexpected [Unknown]
  - Memory impairment [Unknown]
  - Immune system disorder [Unknown]
  - Overweight [Unknown]

NARRATIVE: CASE EVENT DATE: 2019
